FAERS Safety Report 5211787-2 (Version None)
Quarter: 2007Q1

REPORT INFORMATION
  Report Type: 
  Country: None (occurrence: None)
  Receive Date: 20070118
  Receipt Date: 20070103
  Transmission Date: 20070707
  Serious: Yes (Other)
  Sender: FDA-Public Use
  Company Number: US-ROCHE-477313

PATIENT
  Age: 41 Year
  Sex: Female

DRUGS (2)
  1. ACCUTANE [Suspect]
     Indication: DRUG USE FOR UNKNOWN INDICATION
     Dosage: 5 TO 6 PILLS OF ISOTRETINOIN WERE TAKEN SO FAR. EXPIRED MEDICATION.
     Route: 065
     Dates: start: 20061223
  2. ORAL CONTRACEPTION [Concomitant]

REACTIONS (2)
  - NO ADVERSE EFFECT [None]
  - PREGNANCY [None]
